FAERS Safety Report 6935010-3 (Version None)
Quarter: 2010Q3

REPORT INFORMATION
  Report Type: 
  Country: None (occurrence: None)
  Receive Date: 20100822
  Receipt Date: 20100809
  Transmission Date: 20110219
  Serious: Yes (Other)
  Sender: FDA-Public Use
  Company Number: PHHY2010DE52746

PATIENT
  Age: 46 Year
  Sex: Female
  Weight: 53 kg

DRUGS (5)
  1. ACLASTA/ZOLEDRONATE T29581+A++OS [Suspect]
     Indication: OSTEOPOROSIS
     Dosage: 5 MG, ONCE YEAR
     Dates: start: 20100128
  2. VITAMIN D [Concomitant]
     Indication: OSTEOPOROSIS
  3. CALCIUM [Concomitant]
     Indication: OSTEOPOROSIS
  4. PREDNISOLONE ACETATE [Concomitant]
     Indication: MULTIPLE SCLEROSIS
     Dosage: 10 MG, UNK
  5. KATADOLON [Concomitant]
     Indication: OSTEOPOROSIS

REACTIONS (1)
  - FOOT FRACTURE [None]
